FAERS Safety Report 8439696-6 (Version None)
Quarter: 2012Q2

REPORT INFORMATION
  Report Type: 
  Country: None (occurrence: None)
  Receive Date: 20120615
  Receipt Date: 20120606
  Transmission Date: 20120825
  Serious: Yes (Hospitalization)
  Sender: FDA-Public Use
  Company Number: CH-SANOFI-AVENTIS-2012SA040539

PATIENT
  Age: 70 Year
  Sex: Male

DRUGS (6)
  1. AMLODIPINE [Concomitant]
     Route: 048
  2. CORVATON [Concomitant]
     Route: 048
  3. LOPRESSOR [Concomitant]
     Route: 048
  4. PLAVIX [Suspect]
     Route: 048
  5. ASPIRIN [Interacting]
     Route: 048
  6. ATORVASTATIN CALCIUM [Concomitant]
     Route: 048

REACTIONS (4)
  - HAEMORRHAGIC ANAEMIA [None]
  - MELAENA [None]
  - GASTROINTESTINAL HAEMORRHAGE [None]
  - GASTRITIS EROSIVE [None]
